FAERS Safety Report 5618908-8 (Version None)
Quarter: 2008Q1

REPORT INFORMATION
  Report Type: 
  Country: None (occurrence: None)
  Receive Date: 20080205
  Receipt Date: 20080129
  Transmission Date: 20080703
  Serious: Yes (Death)
  Sender: FDA-Public Use
  Company Number: S08-USA-00360-01

PATIENT
  Age: 14 Year
  Sex: Male

DRUGS (1)
  1. LEXAPRO [Suspect]
     Indication: PSYCHOMOTOR HYPERACTIVITY
     Dates: start: 20060106, end: 20060127

REACTIONS (7)
  - AGITATION [None]
  - ANXIETY [None]
  - ASPHYXIA [None]
  - COMPLETED SUICIDE [None]
  - DEPRESSED MOOD [None]
  - GENERAL PHYSICAL HEALTH DETERIORATION [None]
  - HOSTILITY [None]
